FAERS Safety Report 8887328 (Version 2)
Quarter: 2012Q4

REPORT INFORMATION
  Report Type: 
  Country: US (occurrence: US)
  Receive Date: 20121101
  Receipt Date: 20121218
  Transmission Date: 20130627
  Serious: Yes (Hospitalization)
  Sender: FDA-Public Use
  Company Number: US-PFIZER INC-2012272290

PATIENT
  Age: 69 Year
  Sex: Female
  Weight: 144 kg

DRUGS (14)
  1. LIPITOR [Suspect]
     Indication: HIGH CHOLESTEROL
     Dosage: 10 mg, once a day
     Route: 048
     Dates: start: 2002
  2. NEURONTIN [Suspect]
     Indication: SPINAL OSTEOARTHRITIS
     Dosage: 200 mg, two times a day
     Route: 048
     Dates: start: 201011
  3. NEURONTIN [Suspect]
     Indication: BACK DISORDER
  4. NEURONTIN [Suspect]
     Indication: SCOLIOSIS
  5. NEURONTIN [Suspect]
     Indication: NERVE PAIN
  6. INSULIN [Concomitant]
     Indication: DIABETES
     Dosage: UNK
  7. HYDROCHLOROTHIAZIDE [Concomitant]
     Indication: BLOOD PRESSURE HIGH
     Dosage: UNK
  8. WELLBUTRIN [Concomitant]
     Dosage: UNK
  9. AMIODARONE [Concomitant]
     Dosage: UNK
  10. LEVOTHYROXINE [Concomitant]
     Dosage: UNK
  11. METOLAZONE [Concomitant]
     Dosage: UNK
  12. TORSEMIDE [Concomitant]
     Dosage: UNK
  13. BABY ASPIRIN [Concomitant]
     Dosage: UNK
  14. CARVEDILOL [Concomitant]
     Dosage: UNK

REACTIONS (3)
  - Blood pressure increased [Unknown]
  - Fluid retention [Unknown]
  - Haemodialysis [Unknown]
